FAERS Safety Report 8300860-8 (Version None)
Quarter: 2012Q1

REPORT INFORMATION
  Report Type: 
  Country: None (occurrence: None)
  Receive Date: 20120326
  Receipt Date: 20111228
  Transmission Date: 20120608
  Serious: Yes (Other)
  Sender: FDA-Public Use
  Company Number: PHHY2011US62431

PATIENT
  Age: 83 Year
  Sex: Female

DRUGS (3)
  1. ATENOLOL [Concomitant]
  2. TASIGNA [Suspect]
     Indication: CHRONIC MYELOID LEUKAEMIA
     Dosage: 150 MG, Q12H, ORAL ; 150 MG, DAILY, ORAL
     Route: 048
     Dates: start: 20110615
  3. TASIGNA [Suspect]
     Indication: CHRONIC MYELOID LEUKAEMIA
     Dosage: 150 MG, Q12H, ORAL ; 150 MG, DAILY, ORAL
     Route: 048
     Dates: start: 20110618

REACTIONS (8)
  - URINARY TRACT INFECTION [None]
  - DYSPHAGIA [None]
  - OROPHARYNGEAL PAIN [None]
  - FULL BLOOD COUNT ABNORMAL [None]
  - ABDOMINAL DISCOMFORT [None]
  - ASTHENIA [None]
  - FATIGUE [None]
  - DECREASED APPETITE [None]
